FAERS Safety Report 10613421 (Version 2)
Quarter: 2015Q1

REPORT INFORMATION
  Report Type: Spontaneous
  Country: US (occurrence: US)
  Receive Date: 20141128
  Receipt Date: 20150213
  Transmission Date: 20150720
  Serious: Yes (Other)
  Sender: FDA-Public Use
  Company Number: US-JNJFOC-20141116976

PATIENT
  Age: 18 Year
  Sex: Female
  Weight: 80.29 kg

DRUGS (7)
  1. REMICADE [Suspect]
     Active Substance: INFLIXIMAB
     Indication: COLITIS ULCERATIVE
     Route: 042
     Dates: start: 20140220
  2. REMICADE [Suspect]
     Active Substance: INFLIXIMAB
     Indication: COLITIS ULCERATIVE
     Dosage: 4-6 WEEKS
     Route: 042
     Dates: start: 20141027
  3. IMURAN [Suspect]
     Active Substance: AZATHIOPRINE
     Indication: IMMUNOMODULATORY THERAPY
     Route: 065
     Dates: start: 20131216
  4. VITAMIN D [Concomitant]
     Active Substance: CHOLECALCIFEROL
     Indication: VITAMIN D DEFICIENCY
     Route: 065
     Dates: start: 20120108
  5. FOLIC ACID. [Concomitant]
     Active Substance: FOLIC ACID
     Indication: VITAMIN B COMPLEX DEFICIENCY
     Route: 065
     Dates: start: 20130415
  6. APRISO [Concomitant]
     Active Substance: MESALAMINE
     Indication: INFLAMMATION
     Route: 065
     Dates: start: 20131202
  7. REMICADE [Suspect]
     Active Substance: INFLIXIMAB
     Indication: COLITIS ULCERATIVE
     Dosage: 4-6 WEEKS
     Route: 042
     Dates: start: 20141216

REACTIONS (3)
  - Hemiplegia [Recovered/Resolved]
  - Migraine [Recovering/Resolving]
  - Epstein-Barr virus antibody positive [Recovered/Resolved]

NARRATIVE: CASE EVENT DATE: 20141025
